FAERS Safety Report 5420591-1 (Version None)
Quarter: 2007Q3

REPORT INFORMATION
  Report Type: 
  Country: None (occurrence: None)
  Receive Date: 20070816
  Receipt Date: 20070720
  Transmission Date: 20080115
  Serious: Yes (Congenital Anomaly, Other)
  Sender: FDA-Public Use
  Company Number: 6036216

PATIENT
  Sex: Male

DRUGS (1)
  1. FLUCONAZOLE [Suspect]
     Indication: DRUG EXPOSURE DURING PREGNANCY
     Dosage: 800 MG (800 MG, 1 IN 1 D) TRANSPLACENTAL
     Route: 064

REACTIONS (31)
  - ANOMALY OF EXTERNAL EAR CONGENITAL [None]
  - BACTERAEMIA [None]
  - BRACHYCEPHALY [None]
  - CLONUS [None]
  - CONGENITAL RENAL DISORDER [None]
  - CONVULSION NEONATAL [None]
  - CRANIOSYNOSTOSIS [None]
  - DEAFNESS [None]
  - DEVELOPMENTAL DELAY [None]
  - DRUG EXPOSURE DURING PREGNANCY [None]
  - DRUG WITHDRAWAL SYNDROME NEONATAL [None]
  - DYSMORPHISM [None]
  - EAR DISORDER [None]
  - EYELID PTOSIS [None]
  - GRAND MAL CONVULSION [None]
  - HYPERREFLEXIA [None]
  - HYPERTELORISM OF ORBIT [None]
  - JAW DISORDER [None]
  - JOINT CONTRACTURE [None]
  - KYPHOSIS [None]
  - MUSCULOSKELETAL DISORDER [None]
  - NASAL DISORDER [None]
  - NEONATAL DISORDER [None]
  - NEONATAL PNEUMONIA [None]
  - NERVOUS SYSTEM DISORDER [None]
  - PILONIDAL CYST CONGENITAL [None]
  - PNEUMONIA STREPTOCOCCAL [None]
  - PROMINENT EPICANTHAL FOLDS [None]
  - SKULL MALFORMATION [None]
  - SYNOSTOSIS [None]
  - TORTICOLLIS [None]
